FAERS Safety Report 6067574-9 (Version None)
Quarter: 2009Q1

REPORT INFORMATION
  Report Type: 
  Country: None (occurrence: None)
  Receive Date: 20090202
  Receipt Date: 20090121
  Transmission Date: 20090719
  Serious: Yes (Hospitalization)
  Sender: FDA-Public Use
  Company Number: DSU-2009-00162

PATIENT
  Sex: Male
  Weight: 122.4712 kg

DRUGS (2)
  1. BENICAR HCT [Suspect]
     Indication: HYPERTENSION
     Dosage: PER ORAL, ABOUT TWO YEARS AGO
     Route: 048
  2. BENICAR [Suspect]
     Indication: HYPERTENSION
     Dosage: PER ORAL, , ABOUT FOUR YEARS AGO
     Route: 048

REACTIONS (10)
  - ASTHENIA [None]
  - COELIAC DISEASE [None]
  - DEHYDRATION [None]
  - DIARRHOEA [None]
  - FATIGUE [None]
  - HYPERHIDROSIS [None]
  - HYPOTENSION [None]
  - PAIN [None]
  - RENAL IMPAIRMENT [None]
  - RETCHING [None]
